FAERS Safety Report 19928989 (Version 3)
Quarter: 2024Q1

REPORT INFORMATION
  Report Type: Spontaneous
  Country: US (occurrence: US)
  Receive Date: 20211007
  Receipt Date: 20240219
  Transmission Date: 20240409
  Serious: Yes (Death, Hospitalization, Other)
  Sender: FDA-Public Use
  Company Number: US-TEVA-2021-US-1964346

PATIENT
  Age: 88 Year
  Sex: Female
  Weight: 56.7 kg

DRUGS (13)
  1. HYDROCHLOROTHIAZIDE\VALSARTAN [Suspect]
     Active Substance: HYDROCHLOROTHIAZIDE\VALSARTAN
     Indication: Hypertension
     Dosage: DOSAGE TEXT: 80-12.5MG
     Route: 065
     Dates: start: 20140812, end: 20150603
  2. Tums-Calcium carbonate [Concomitant]
     Indication: Gastrooesophageal reflux disease
     Dosage: TIME INTERVAL: AS NECESSARY: PRN
     Dates: start: 2014, end: 2019
  3. ASPIRIN [Concomitant]
     Active Substance: ASPIRIN
     Indication: Analgesic therapy
     Dosage: TIME INTERVAL: AS NECESSARY: PRN
     Dates: start: 2014, end: 2016
  4. HYDROCHLOROTHIAZIDE\VALSARTAN [Suspect]
     Active Substance: HYDROCHLOROTHIAZIDE\VALSARTAN
     Indication: Hypertension
     Dosage: DOSAGE TEXT: 80-12.5MG CAMBER
     Route: 065
     Dates: start: 20150623, end: 20180916
  5. HYDROCHLOROTHIAZIDE\VALSARTAN [Suspect]
     Active Substance: HYDROCHLOROTHIAZIDE\VALSARTAN
     Indication: Hypertension
     Dosage: DOSAGE TEXT: 80-12.5MG ONCE DAILY PAR
     Route: 048
     Dates: start: 2014
  6. HYDROCHLOROTHIAZIDE\VALSARTAN [Suspect]
     Active Substance: HYDROCHLOROTHIAZIDE\VALSARTAN
     Indication: Hypertension
     Dosage: DOSAGE TEXT: 80-12.5MG ONCE DAILY, MACLEODS
     Route: 048
     Dates: start: 2016
  7. HYDROCHLOROTHIAZIDE\LOSARTAN [Suspect]
     Active Substance: HYDROCHLOROTHIAZIDE\LOSARTAN
     Indication: Hypertension
     Dosage: DOSAGE TEXT: 50-12.5MG
     Route: 065
     Dates: start: 20180828, end: 20190727
  8. HYDROCHLOROTHIAZIDE\LOSARTAN [Suspect]
     Active Substance: HYDROCHLOROTHIAZIDE\LOSARTAN
     Indication: Hypertension
     Dosage: DOSAGE TEXT: 50/12.5MG ONCE DAILY, TORRENT
     Route: 048
     Dates: start: 2018
  9. METOPROLOL SUCCINATE [Concomitant]
     Active Substance: METOPROLOL SUCCINATE
     Indication: Hypertension
     Dosage: ER
     Route: 048
  10. SIMVASTATIN [Concomitant]
     Active Substance: SIMVASTATIN
     Indication: Hyperlipidaemia
     Dosage: DOSAGE TEXT: QHS
     Route: 048
  11. POTASSIUM CHLORIDE [Concomitant]
     Active Substance: POTASSIUM CHLORIDE
     Indication: Cardiac failure congestive
     Dosage: ER
     Route: 048
  12. FUROSEMIDE [Concomitant]
     Active Substance: FUROSEMIDE
     Indication: Cardiac failure congestive
     Route: 048
  13. DIOVAN HCT [Suspect]
     Active Substance: HYDROCHLOROTHIAZIDE\VALSARTAN
     Indication: Hypertension
     Dosage: DOSAGE TEXT: 160MG/25MG ONCE DAILY
     Route: 048
     Dates: start: 20110618, end: 20110718

REACTIONS (5)
  - Pancreatic carcinoma [Fatal]
  - Jaundice cholestatic [Fatal]
  - Cardiopulmonary failure [Fatal]
  - Decreased appetite [Unknown]
  - Diverticulum [Unknown]
